FAERS Safety Report 21513498 (Version 1)
Quarter: 2022Q4

REPORT INFORMATION
  Report Type: Spontaneous
  Country: US (occurrence: None)
  Receive Date: 20221026
  Receipt Date: 20221026
  Transmission Date: 20230113
  Serious: Yes (Hospitalization)
  Sender: FDA-Public Use
  Company Number: None

PATIENT
  Age: 74 Year
  Sex: Male

DRUGS (1)
  1. ABIRATERONE [Suspect]
     Active Substance: ABIRATERONE
     Dosage: 1000MG DAILY ORAL
     Route: 048
     Dates: start: 20220112

REACTIONS (13)
  - Blood glucose increased [None]
  - Fall [None]
  - Gait disturbance [None]
  - Headache [None]
  - Facial bones fracture [None]
  - Cognitive disorder [None]
  - Arteriosclerosis Moenckeberg-type [None]
  - Asthenia [None]
  - Balance disorder [None]
  - Blood potassium decreased [None]
  - Cerebrovascular accident [None]
  - Atrial fibrillation [None]
  - Therapy interrupted [None]

NARRATIVE: CASE EVENT DATE: 20220401
